FAERS Safety Report 10774490 (Version 2)
Quarter: 2015Q2

REPORT INFORMATION
  Report Type: Spontaneous
  Country: US (occurrence: US)
  Receive Date: 20150209
  Receipt Date: 20150406
  Transmission Date: 20150821
  Serious: Yes (Other)
  Sender: FDA-Public Use
  Company Number: US-AMGEN-USASP2015011404

PATIENT

DRUGS (5)
  1. PHENERGAN [Concomitant]
     Active Substance: PROMETHAZINE HYDROCHLORIDE
     Dosage: 25 MG, AS NECESSARY
     Route: 064
     Dates: start: 201206, end: 20130305
  2. ENBREL [Suspect]
     Active Substance: ETANERCEPT
     Indication: EXPOSURE DURING PREGNANCY
     Dosage: 50 MG, QWK
     Route: 064
     Dates: start: 200910, end: 201011
  3. ZOFRAN                             /00955301/ [Concomitant]
     Active Substance: ONDANSETRON HYDROCHLORIDE
     Dosage: 8 MG, AS NECESSARY
     Route: 064
     Dates: start: 201206, end: 20130305
  4. ZYRTEC [Concomitant]
     Active Substance: CETIRIZINE HYDROCHLORIDE
     Dosage: 10 MG, QD
     Route: 064
     Dates: start: 200901
  5. FLU VACCINE VII [Concomitant]
     Dosage: UNK
     Route: 064

REACTIONS (2)
  - Foetal heart rate decreased [Recovered/Resolved]
  - Foetal distress syndrome [Recovered/Resolved]
